FAERS Safety Report 17629665 (Version 4)
Quarter: 2020Q4

REPORT INFORMATION
  Report Type: Spontaneous
  Country: US (occurrence: US)
  Receive Date: 20200406
  Receipt Date: 20201026
  Transmission Date: 20210113
  Serious: Yes (Other)
  Sender: FDA-Public Use
  Company Number: US-PFIZER INC-2020137904

PATIENT
  Age: 66 Year
  Sex: Female

DRUGS (2)
  1. XELJANZ XR [Suspect]
     Active Substance: TOFACITINIB CITRATE
     Dosage: 11 MG, 1X/DAY
     Route: 058
     Dates: start: 20190205
  2. XELJANZ XR [Suspect]
     Active Substance: TOFACITINIB CITRATE
     Indication: RHEUMATOID ARTHRITIS
     Dosage: 11 MG, DAILY
     Route: 048
     Dates: start: 20190205

REACTIONS (10)
  - Bronchitis [Unknown]
  - Pneumonia [Unknown]
  - Drug ineffective [Unknown]
  - Red blood cell sedimentation rate decreased [Not Recovered/Not Resolved]
  - Product dose omission issue [Unknown]
  - Cough [Unknown]
  - Nasopharyngitis [Unknown]
  - Productive cough [Unknown]
  - Sneezing [Unknown]
  - Incorrect route of product administration [Unknown]

NARRATIVE: CASE EVENT DATE: 2020
